FAERS Safety Report 9974620 (Version 1)
Quarter: 2014Q1

REPORT INFORMATION
  Report Type: Report from Study
  Country: US (occurrence: US)
  Receive Date: 20140306
  Receipt Date: 20140306
  Transmission Date: 20141002
  Serious: No
  Sender: FDA-Public Use
  Company Number: US-ABBVIE-13P-163-1157340-00

PATIENT
  Age: 63 Year
  Sex: Female

DRUGS (11)
  1. HUMIRA [Suspect]
     Indication: PSORIASIS
     Dates: start: 201302
  2. ATORVASTATIN [Concomitant]
     Indication: BLOOD CHOLESTEROL
  3. CELEBREX [Concomitant]
     Indication: ARTHRITIS
  4. VENLAFAXINE [Concomitant]
     Indication: ANXIETY
  5. NOVOLOG [Concomitant]
     Indication: DIABETES MELLITUS
     Dosage: 20 UNIT PER SLIDING SCALE BEFORE EVERY MEAL
  6. LEVEMIR [Concomitant]
     Indication: PRODUCT USED FOR UNKNOWN INDICATION
     Dosage: AT BEDTIME
  7. OMEPRAZOLE [Concomitant]
     Indication: GASTRIC DISORDER
  8. ASPIRIN [Concomitant]
     Indication: PROPHYLAXIS
  9. VITAMIN D [Concomitant]
     Indication: PROPHYLAXIS
  10. GABAPENTIN [Concomitant]
     Indication: BACK PAIN
  11. HYDROCODONE/ACETAMINOPHEN [Concomitant]
     Indication: BACK PAIN
     Dosage: 5/500 MG AS NEEDED EVERY 4-6 HOURS

REACTIONS (9)
  - Malaise [Not Recovered/Not Resolved]
  - Injection site pain [Not Recovered/Not Resolved]
  - Injection site pain [Not Recovered/Not Resolved]
  - Blood urine present [Not Recovered/Not Resolved]
  - Nephrolithiasis [Not Recovered/Not Resolved]
  - Dizziness [Not Recovered/Not Resolved]
  - Dyspnoea [Not Recovered/Not Resolved]
  - Injection site bruising [Recovering/Resolving]
  - Injection site nodule [Not Recovered/Not Resolved]
